FAERS Safety Report 7713799-3 (Version None)
Quarter: 2011Q3

REPORT INFORMATION
  Report Type: 
  Country: None (occurrence: None)
  Receive Date: 20110826
  Receipt Date: 20110823
  Transmission Date: 20111222
  Serious: No
  Sender: FDA-Public Use
  Company Number: US-PFIZER INC-2011196390

PATIENT
  Age: 41 Year
  Sex: Male

DRUGS (3)
  1. BENICAR [Concomitant]
     Dosage: 20 MG, UNK
     Dates: start: 20110701
  2. LIPITOR [Suspect]
     Dosage: UNK
  3. BYSTOLIC [Suspect]
     Indication: HYPERTENSION
     Dosage: 10 MG, DAILY
     Route: 048
     Dates: start: 20100101, end: 20110811

REACTIONS (2)
  - GAIT DISTURBANCE [None]
  - ARTHRALGIA [None]
